FAERS Safety Report 17057133 (Version 2)
Quarter: 2019Q4

REPORT INFORMATION
  Report Type: Report from Study
  Country: IT (occurrence: IT)
  Receive Date: 20191121
  Receipt Date: 20191225
  Transmission Date: 20200122
  Serious: Yes (Hospitalization, Other)
  Sender: FDA-Public Use
  Company Number: IT-ACCORD-161425

PATIENT
  Sex: Female

DRUGS (2)
  1. CISPLATIN. [Suspect]
     Active Substance: CISPLATIN
     Indication: MALIGNANT PERITONEAL NEOPLASM
     Dosage: DOSE: 43 MG/L OF PERFUSATE,PERFUSATE VOLUME: 2.5 L/M2,
     Route: 033
  2. DOXORUBICIN [Suspect]
     Active Substance: DOXORUBICIN
     Indication: MALIGNANT PERITONEAL NEOPLASM
     Dosage: 15 MG/L OF PERFUSATE,PERFUSATE VOLUME: 2.5 L/M2,HYPERTHERMIC?INTRAPERITONEAL CHEMOTHERAPY AT 42
     Route: 033

REACTIONS (4)
  - Respiratory distress [Unknown]
  - Shock [Unknown]
  - Off label use [Unknown]
  - Neutropenia [Unknown]
